FAERS Safety Report 24914869 (Version 3)
Quarter: 2025Q1

REPORT INFORMATION
  Report Type: Spontaneous
  Country: US (occurrence: US)
  Receive Date: 20250203
  Receipt Date: 20250227
  Transmission Date: 20250409
  Serious: No
  Sender: BLUEPRINT MEDICINES
  Company Number: US-Blueprint Medicines Corporation-2025-AER-00182

PATIENT
  Age: 81 Year
  Sex: Male

DRUGS (1)
  1. AYVAKIT [Suspect]
     Active Substance: AVAPRITINIB
     Indication: Systemic mastocytosis
     Route: 048
     Dates: start: 202501

REACTIONS (6)
  - Fatigue [Unknown]
  - Back pain [Not Recovered/Not Resolved]
  - Vitamin D decreased [Unknown]
  - Rash [Unknown]
  - Hypotension [Not Recovered/Not Resolved]
  - Dizziness [Recovering/Resolving]
